FAERS Safety Report 15452926 (Version 3)
Quarter: 2018Q4

REPORT INFORMATION
  Report Type: Spontaneous
  Country: US (occurrence: US)
  Receive Date: 20181001
  Receipt Date: 20181205
  Transmission Date: 20190204
  Serious: Yes (Hospitalization, Other)
  Sender: FDA-Public Use
  Company Number: US-BIOCOMPATIBLES UK LTD-2018BTG01788

PATIENT
  Age: 52 Year
  Sex: Male

DRUGS (2)
  1. CROFAB [Suspect]
     Active Substance: CROTALIDAE POLYVALENT IMMUNE FAB (OVINE)
     Indication: SNAKE BITE
     Dosage: 4 VIALS (OUT OF 6), INITIAL
     Dates: start: 20180916, end: 20180916
  2. CROFAB [Suspect]
     Active Substance: CROTALIDAE POLYVALENT IMMUNE FAB (OVINE)
     Dosage: MAINTENANCE DOSE
     Dates: start: 20180919, end: 20180919

REACTIONS (10)
  - Anaphylactic reaction [Recovered/Resolved]
  - Swelling [Recovered/Resolved]
  - Nausea [Unknown]
  - Cellulitis [Unknown]
  - Erythema [Recovered/Resolved]
  - Cytopenia [Unknown]
  - Anaphylactic shock [Recovered/Resolved]
  - Tenderness [Recovered/Resolved]
  - Rash [Recovered/Resolved]
  - Pain [Unknown]

NARRATIVE: CASE EVENT DATE: 2018
